FAERS Safety Report 8770832 (Version 2)
Quarter: 2012Q4

REPORT INFORMATION
  Report Type: 
  Country: US (occurrence: US)
  Receive Date: 20120906
  Receipt Date: 20120926
  Transmission Date: 20130627
  Serious: Yes (Other)
  Sender: FDA-Public Use
  Company Number: US-PFIZER INC-2012217682

PATIENT
  Age: 31 Year
  Sex: Female
  Weight: 51.25 kg

DRUGS (4)
  1. PRISTIQ [Suspect]
     Indication: ANXIETY
     Dosage: 50 mg, 1x/day
     Route: 048
  2. PRISTIQ [Suspect]
     Dosage: UNK
     Route: 048
  3. PRISTIQ [Suspect]
     Dosage: 50 mg, 1x/day
     Route: 048
     Dates: start: 20120901
  4. ZONEGRAN [Concomitant]
     Indication: CONVULSION
     Dosage: 400 mg, 1x/day

REACTIONS (8)
  - Aphagia [Unknown]
  - Weight decreased [Unknown]
  - Anxiety [Not Recovered/Not Resolved]
  - Insomnia [Not Recovered/Not Resolved]
  - Somnolence [Not Recovered/Not Resolved]
  - Facial pain [Not Recovered/Not Resolved]
  - Headache [Not Recovered/Not Resolved]
  - Abdominal pain upper [Not Recovered/Not Resolved]
